FAERS Safety Report 6779009-9 (Version None)
Quarter: 2010Q2

REPORT INFORMATION
  Report Type: 
  Country: None (occurrence: None)
  Receive Date: 20100618
  Receipt Date: 20100609
  Transmission Date: 20101027
  Serious: Yes (Hospitalization)
  Sender: FDA-Public Use
  Company Number: IT-PFIZER INC-2010072643

PATIENT
  Age: 70 Year
  Sex: Female

DRUGS (1)
  1. TORVAST [Suspect]
     Indication: DYSLIPIDAEMIA
     Dosage: 80 MG, X/DAY
     Route: 048
     Dates: start: 20091001, end: 20100508

REACTIONS (2)
  - ASTHENIA [None]
  - MYALGIA [None]
